FAERS Safety Report 18985444 (Version 1)
Quarter: 2021Q1

REPORT INFORMATION
  Report Type: Spontaneous
  Country: US (occurrence: US)
  Receive Date: 20210307
  Receipt Date: 20210307
  Transmission Date: 20210420
  Serious: No
  Sender: FDA-Public Use
  Company Number: None

PATIENT
  Age: 71 Year
  Sex: Male
  Weight: 104.78 kg

DRUGS (1)
  1. METFORMIN (METFORMIN HCL 500MG TAB, SA) [Suspect]
     Active Substance: METFORMIN HYDROCHLORIDE
     Indication: DIABETES MELLITUS
     Dates: start: 20181001, end: 20210223

REACTIONS (1)
  - Lactic acidosis [None]

NARRATIVE: CASE EVENT DATE: 20210223
